FAERS Safety Report 5725484-8 (Version None)
Quarter: 2008Q2

REPORT INFORMATION
  Report Type: 
  Country: None (occurrence: None)
  Receive Date: 20080501
  Receipt Date: 20080421
  Transmission Date: 20081010
  Serious: Yes (Death)
  Sender: FDA-Public Use
  Company Number: ZW-KINGPHARMUSA00001-K200800463

PATIENT

DRUGS (2)
  1. SEPTRA [Suspect]
  2. ZIDOVUDINE [Suspect]

REACTIONS (2)
  - ANAEMIA [None]
  - RENAL FAILURE ACUTE [None]
